FAERS Safety Report 11737656 (Version 1)
Quarter: 2015Q4

REPORT INFORMATION
  Report Type: Spontaneous
  Country: FR (occurrence: FR)
  Receive Date: 20151113
  Receipt Date: 20151113
  Transmission Date: 20160304
  Serious: Yes (Hospitalization)
  Sender: FDA-Public Use
  Company Number: FR-ASTRAZENECA-2015SF10392

PATIENT
  Age: 24 Year
  Sex: Male

DRUGS (5)
  1. LYSANXIA [Suspect]
     Active Substance: PRAZEPAM
     Route: 065
     Dates: start: 20130302
  2. XEROQUEL [Suspect]
     Active Substance: QUETIAPINE FUMARATE
     Route: 048
     Dates: start: 20130226
  3. VALIUM [Suspect]
     Active Substance: DIAZEPAM
     Route: 065
     Dates: start: 20130302
  4. XEROQUEL [Suspect]
     Active Substance: QUETIAPINE FUMARATE
     Route: 048
     Dates: start: 20130302
  5. LYRICA [Suspect]
     Active Substance: PREGABALIN
     Route: 065
     Dates: start: 20130226

REACTIONS (4)
  - Somnolence [Unknown]
  - Overdose [Unknown]
  - Decreased activity [Unknown]
  - Intentional product misuse [Unknown]
